FAERS Safety Report 24332865 (Version 1)
Quarter: 2024Q3

REPORT INFORMATION
  Report Type: Spontaneous
  Country: US (occurrence: None)
  Receive Date: 20240917
  Receipt Date: 20240917
  Transmission Date: 20241017
  Serious: Yes (Other)
  Sender: Public
  Company Number: None

PATIENT
  Age: 40 Year
  Sex: Male

DRUGS (1)
  1. HUMIRA [Suspect]
     Active Substance: ADALIMUMAB
     Dates: start: 20230714, end: 20240423

REACTIONS (3)
  - Candida infection [None]
  - Immune system disorder [None]
  - Product prescribing error [None]

NARRATIVE: CASE EVENT DATE: 20240917
